FAERS Safety Report 8921022 (Version 2)
Quarter: 2012Q4

REPORT INFORMATION
  Report Type: Report from Study
  Country: US (occurrence: US)
  Receive Date: 20121121
  Receipt Date: 20121212
  Transmission Date: 20130627
  Serious: Yes (Hospitalization)
  Sender: FDA-Public Use
  Company Number: US-ABBOTT-12P-163-1009028-00

PATIENT
  Age: 64 Year
  Sex: Female

DRUGS (2)
  1. HUMIRA [Suspect]
     Indication: PSORIASIS
     Dates: start: 20120926
  2. A LOT OF UNKNOWN MEDICATION (PATIENT CAN^T READ LIST DUE TO BLINDNESS) [Concomitant]
     Indication: PRODUCT USED FOR UNKNOWN INDICATION

REACTIONS (5)
  - Heart rate irregular [Not Recovered/Not Resolved]
  - Hypoaesthesia [Unknown]
  - Tachycardia [Unknown]
  - Dyspnoea [Unknown]
  - Dry mouth [Unknown]
